FAERS Safety Report 13775822 (Version 1)
Quarter: 2017Q3

REPORT INFORMATION
  Report Type: Report from Study
  Country: AU (occurrence: AU)
  Receive Date: 20170721
  Receipt Date: 20170721
  Transmission Date: 20171127
  Serious: Yes (Hospitalization)
  Sender: FDA-Public Use
  Company Number: AU-AMGEN-AUSCT2017094519

PATIENT
  Age: 69 Year
  Sex: Female
  Weight: 49.7 kg

DRUGS (3)
  1. CARFILZOMIB [Suspect]
     Active Substance: CARFILZOMIB
     Dosage: 69 UNK, PER CHEMO REGIM
     Route: 042
     Dates: start: 20170615, end: 20170615
  2. CARFILZOMIB [Suspect]
     Active Substance: CARFILZOMIB
     Indication: PLASMA CELL MYELOMA
     Dosage: 31 UNK, PER CHEMO REGIM
     Route: 042
     Dates: start: 20170417, end: 20170615
  3. DEXAMETHASONE. [Suspect]
     Active Substance: DEXAMETHASONE
     Indication: PLASMA CELL MYELOMA
     Dosage: 20 UNK, PER CHEMO REGIM
     Route: 048
     Dates: start: 20170417

REACTIONS (1)
  - Lethargy [Recovered/Resolved]

NARRATIVE: CASE EVENT DATE: 20170619
